FAERS Safety Report 5772423-X (Version None)
Quarter: 2008Q2

REPORT INFORMATION
  Report Type: 
  Country: None (occurrence: None)
  Receive Date: 20080613
  Receipt Date: 20080602
  Transmission Date: 20081010
  Serious: Yes (Other)
  Sender: FDA-Public Use
  Company Number: US-ELI_LILLY_AND_COMPANY-US200804001518

PATIENT
  Sex: Female
  Weight: 68.027 kg

DRUGS (4)
  1. BYETTA [Suspect]
     Indication: TYPE 2 DIABETES MELLITUS
     Dosage: 5 UG, 2/D
     Route: 058
     Dates: start: 20080403
  2. METFORMIN [Concomitant]
     Indication: TYPE 2 DIABETES MELLITUS
     Dosage: 1000 MG, 2/D
     Route: 058
     Dates: start: 20030101
  3. HYZAAR [Concomitant]
     Indication: HYPERTENSION
  4. ASPIRIN [Concomitant]
     Dosage: 81 MG, DAILY (1/D)
     Route: 048

REACTIONS (11)
  - BLOOD GLUCOSE DECREASED [None]
  - DIARRHOEA [None]
  - DYSPEPSIA [None]
  - EARLY SATIETY [None]
  - ERUCTATION [None]
  - FALL [None]
  - NAUSEA [None]
  - SYNCOPE [None]
  - TREMOR [None]
  - VOMITING [None]
  - WEIGHT DECREASED [None]
